FAERS Safety Report 8766598 (Version 1)
Quarter: 2012Q4

REPORT INFORMATION
  Report Type: 
  Country: US (occurrence: US)
  Receive Date: 20120831
  Receipt Date: 20120831
  Transmission Date: 20130627
  Serious: Yes (Other)
  Sender: FDA-Public Use
  Company Number: US-ASTELLAS-2012US007418

PATIENT

DRUGS (1)
  1. VESICARE [Suspect]
     Indication: URINARY INCONTINENCE
     Dosage: 10 mg, Unknown/D
     Route: 048

REACTIONS (4)
  - Haemorrhage [Unknown]
  - Gingival bleeding [Unknown]
  - Haemorrhoids [Unknown]
  - Fatigue [Unknown]
